FAERS Safety Report 13244042 (Version 1)
Quarter: 2017Q1

REPORT INFORMATION
  Report Type: Spontaneous
  Country: US (occurrence: US)
  Receive Date: 20170217
  Receipt Date: 20170217
  Transmission Date: 20170428
  Serious: No
  Sender: FDA-Public Use
  Company Number: None

PATIENT
  Age: 75 Year
  Sex: Female
  Weight: 72.64 kg

DRUGS (3)
  1. VALSARTAN. [Concomitant]
     Active Substance: VALSARTAN
  2. LEVOCETIRIZINE 5MG GENERIC FOR XYZAL 5MG  TABLETS [Suspect]
     Active Substance: LEVOCETIRIZINE
     Indication: MULTIPLE ALLERGIES
     Dosage: 30 PILLS 1 DAILY,  MOUTH
     Route: 048
     Dates: start: 20150424, end: 20150501
  3. MULTIPLE VITAMIN [Concomitant]
     Active Substance: VITAMINS

REACTIONS (3)
  - Headache [None]
  - Epistaxis [None]
  - Deafness unilateral [None]

NARRATIVE: CASE EVENT DATE: 20150501
